FAERS Safety Report 10079785 (Version 1)
Quarter: 2014Q2

REPORT INFORMATION
  Report Type: Spontaneous
  Country: FR (occurrence: FR)
  Receive Date: 20140415
  Receipt Date: 20140415
  Transmission Date: 20141212
  Serious: Yes (Hospitalization)
  Sender: FDA-Public Use
  Company Number: FR-GLAXOSMITHKLINE-B0984751A

PATIENT
  Age: 58 Year
  Sex: Male

DRUGS (2)
  1. ARIXTRA [Suspect]
     Indication: THROMBOPHLEBITIS
     Route: 065
     Dates: start: 201203
  2. KARDEGIC [Suspect]
     Indication: CORONARY ARTERY DISEASE
     Dosage: 75MG UNKNOWN
     Route: 048

REACTIONS (8)
  - Epistaxis [Unknown]
  - Tachycardia [Unknown]
  - Ecchymosis [Unknown]
  - Purpura [Unknown]
  - Thrombocytopenia [Recovering/Resolving]
  - Anaemia [Recovering/Resolving]
  - General physical health deterioration [Unknown]
  - Incorrect drug administration duration [Unknown]
